FAERS Safety Report 6390444-3 (Version None)
Quarter: 2009Q4

REPORT INFORMATION
  Report Type: 
  Country: None (occurrence: None)
  Receive Date: 20091006
  Receipt Date: 20090924
  Transmission Date: 20100525
  Serious: Yes (Other)
  Sender: FDA-Public Use
  Company Number: US-AVENTIS-200917786US

PATIENT
  Sex: Female

DRUGS (4)
  1. APIDRA [Suspect]
  2. APIDRA [Suspect]
     Dosage: DOSE: UNK
  3. LANTUS [Suspect]
     Route: 058
     Dates: start: 20050101
  4. OPTICLIK (INSULIN INJECTION PEN) [Suspect]

REACTIONS (3)
  - DEVICE MALFUNCTION [None]
  - HYPOGLYCAEMIA [None]
  - WRONG DRUG ADMINISTERED [None]
